FAERS Safety Report 8794220 (Version 2)
Quarter: 2012Q4

REPORT INFORMATION
  Report Type: 
  Country: US (occurrence: US)
  Receive Date: 20120918
  Receipt Date: 20120928
  Transmission Date: 20130627
  Serious: Yes (Hospitalization)
  Sender: FDA-Public Use
  Company Number: US-009507513-1209USA002584

PATIENT
  Sex: Male

DRUGS (4)
  1. VICTRELIS [Suspect]
     Dosage: 800 mg, tid
     Route: 048
     Dates: start: 201206, end: 201208
  2. NADOLOL [Concomitant]
  3. BUSPAR [Concomitant]
  4. PROCRIT [Concomitant]
     Indication: THROMBOCYTOPENIA

REACTIONS (2)
  - Infection [Unknown]
  - Asthenia [Unknown]
